FAERS Safety Report 24985865 (Version 1)
Quarter: 2025Q1

REPORT INFORMATION
  Report Type: Spontaneous
  Country: GB (occurrence: GB)
  Receive Date: 20250219
  Receipt Date: 20250219
  Transmission Date: 20250409
  Serious: No
  Sender: ALEXION PHARMACEUTICALS
  Company Number: GB-AstraZeneca-2002GB00767

PATIENT
  Age: 59 Year
  Weight: 60 kg

DRUGS (1)
  1. NEXIUM [Suspect]
     Active Substance: ESOMEPRAZOLE MAGNESIUM
     Indication: Gastrooesophageal reflux disease

REACTIONS (2)
  - Tinnitus [Recovered/Resolved]
  - Arthralgia [Recovered/Resolved]
